FAERS Safety Report 11699147 (Version 2)
Quarter: 2015Q4

REPORT INFORMATION
  Report Type: Spontaneous
  Country: TR (occurrence: TR)
  Receive Date: 20151104
  Receipt Date: 20151104
  Transmission Date: 20160304
  Serious: Yes (Hospitalization)
  Sender: FDA-Public Use
  Company Number: TR-ANTARES PHARMA, INC.-2015-LIT-ME-0074

PATIENT
  Age: 45 Year
  Sex: Male

DRUGS (1)
  1. METHOTREXATE [Suspect]
     Active Substance: METHOTREXATE
     Indication: PSORIASIS
     Dosage: 40 MG, QWK
     Route: 048

REACTIONS (7)
  - Photosensitivity reaction [Recovered/Resolved]
  - Erythema [None]
  - Photosensitivity reaction [None]
  - Disease recurrence [None]
  - Rash [None]
  - Accidental overdose [Recovered/Resolved]
  - Oedema [None]
